FAERS Safety Report 19475902 (Version 2)
Quarter: 2021Q3

REPORT INFORMATION
  Report Type: Spontaneous
  Country: US (occurrence: US)
  Receive Date: 20210630
  Receipt Date: 20210701
  Transmission Date: 20211014
  Serious: No
  Sender: FDA-Public Use
  Company Number: US-TEVA-2021-US-1928080

PATIENT
  Age: 63 Year
  Sex: Male
  Weight: 236 kg

DRUGS (8)
  1. METHADONE [Concomitant]
     Active Substance: METHADONE HYDROCHLORIDE
  2. LISINOPRIL. [Concomitant]
     Active Substance: LISINOPRIL
  3. ARMODAFINIL. [Suspect]
     Active Substance: ARMODAFINIL
     Indication: NARCOLEPSY
     Dosage: 300MG AT ONE TIME (1 TABLET OF THE 250MG AND 1 TABLET OF THE 50MG)
     Route: 065
  4. ARMODAFINIL. [Suspect]
     Active Substance: ARMODAFINIL
     Dosage: INCREASED THE PATIENT^S DOSE TO ^250MG TABLET IN THE MORNING AND 150MG TABLET IN THE AFTERNOON TO BE
     Route: 065
  5. CYMBALTA [Concomitant]
     Active Substance: DULOXETINE HYDROCHLORIDE
  6. PERCOCET [Concomitant]
     Active Substance: ACETAMINOPHEN\OXYCODONE HYDROCHLORIDE
  7. ARMODAFINIL. [Suspect]
     Active Substance: ARMODAFINIL
     Dosage: 250MG
     Route: 065
  8. BUPROPION. [Concomitant]
     Active Substance: BUPROPION

REACTIONS (2)
  - Drug ineffective [Unknown]
  - Product prescribing error [Unknown]
